FAERS Safety Report 4963337-3 (Version None)
Quarter: 2006Q2

REPORT INFORMATION
  Report Type: 
  Country: None (occurrence: None)
  Receive Date: 20060405
  Receipt Date: 20060327
  Transmission Date: 20061013
  Serious: Yes (Hospitalization, Other)
  Sender: FDA-Public Use
  Company Number: US-BRISTOL-MYERS SQUIBB COMPANY-13328216

PATIENT
  Age: 14 Year
  Sex: Male

DRUGS (5)
  1. DOXORUBICIN HCL [Suspect]
     Indication: HODGKIN'S DISEASE
  2. METHOTREXATE [Suspect]
     Indication: HODGKIN'S DISEASE
  3. VINBLASTINE [Suspect]
     Indication: HODGKIN'S DISEASE
  4. PREDNISONE [Suspect]
     Indication: HODGKIN'S DISEASE
  5. ITRACONAZOLE [Suspect]
     Indication: HISTOPLASMOSIS

REACTIONS (15)
  - ABDOMINAL PAIN [None]
  - ANAEMIA [None]
  - BACK PAIN [None]
  - BONE MARROW TOXICITY [None]
  - DRUG INTERACTION [None]
  - DRUG TOXICITY [None]
  - HAEMORRHAGE [None]
  - HISTOPLASMOSIS [None]
  - INFLUENZA LIKE ILLNESS [None]
  - MUCOSAL INFLAMMATION [None]
  - NEUROPATHY [None]
  - NEUTROPENIA [None]
  - ORAL INTAKE REDUCED [None]
  - PARAESTHESIA [None]
  - STOMATITIS [None]
